FAERS Safety Report 5419681-9 (Version None)
Quarter: 2007Q3

REPORT INFORMATION
  Report Type: 
  Country: None (occurrence: None)
  Receive Date: 20070820
  Receipt Date: 20070810
  Transmission Date: 20080115
  Serious: Yes (Other)
  Sender: FDA-Public Use
  Company Number: US-PURDUE-USA_2003_0006317

PATIENT
  Age: 46 Year
  Sex: Female

DRUGS (1)
  1. OXYCONTIN [Suspect]
     Indication: PAIN
     Dosage: UNK MG, UNK
     Route: 048
     Dates: start: 20011228, end: 20020628

REACTIONS (9)
  - DEPRESSION [None]
  - DRUG DEPENDENCE [None]
  - DRUG WITHDRAWAL SYNDROME [None]
  - EMOTIONAL DISTRESS [None]
  - HEADACHE [None]
  - INSOMNIA [None]
  - MYOCARDIAL INFARCTION [None]
  - NAUSEA [None]
  - PAIN [None]
